FAERS Safety Report 6642899-4 (Version None)
Quarter: 2010Q1

REPORT INFORMATION
  Report Type: 
  Country: None (occurrence: None)
  Receive Date: 20100316
  Receipt Date: 20100304
  Transmission Date: 20100710
  Serious: Yes (Disabling)
  Sender: FDA-Public Use
  Company Number: 2010-0733

PATIENT
  Age: 48 Year
  Sex: Male

DRUGS (1)
  1. DYSPORT [Suspect]
     Indication: MUSCLE CONTRACTURE
     Dosage: 200 UNITS (200 UNITS, SINGLE CYCLE), INTRAMUSCULAR
     Route: 030
     Dates: start: 20091120, end: 20091120

REACTIONS (2)
  - ASTHENIA [None]
  - DYSPHAGIA [None]
